FAERS Safety Report 8247074-8 (Version None)
Quarter: 2012Q1

REPORT INFORMATION
  Report Type: 
  Country: None (occurrence: None)
  Receive Date: 20120330
  Receipt Date: 20120327
  Transmission Date: 20120608
  Serious: Yes (Other)
  Sender: FDA-Public Use
  Company Number: US-ROCHE-1043349

PATIENT
  Sex: Female

DRUGS (8)
  1. PEGASYS [Suspect]
     Indication: HEPATITIS C
     Route: 058
     Dates: start: 20111026
  2. HYDROXYZINE [Concomitant]
     Dates: start: 20111216
  3. LORAZEPAM [Concomitant]
     Dates: start: 20111216
  4. RIBAVIRIN [Suspect]
     Indication: HEPATITIS C
     Route: 048
     Dates: start: 20111026
  5. INCIVEK [Suspect]
     Indication: HEPATITIS C
     Dates: start: 20111028, end: 20120126
  6. PAXIL [Concomitant]
     Dates: start: 20111216
  7. GAMMA-AMINOBUTYRIC ACID [Concomitant]
  8. TRIAMCINOLONE [Concomitant]
     Dates: start: 20111216

REACTIONS (1)
  - DYSTONIA [None]
